FAERS Safety Report 9530729 (Version 2)
Quarter: 2013Q4

REPORT INFORMATION
  Report Type: Spontaneous
  Country: DE (occurrence: DE)
  Receive Date: 20130918
  Receipt Date: 20131212
  Transmission Date: 20140711
  Serious: Yes (Hospitalization)
  Sender: FDA-Public Use
  Company Number: DE-AMGEN-DEUSP2013065264

PATIENT
  Age: 43 Year
  Sex: Male

DRUGS (4)
  1. ENBREL [Suspect]
     Indication: PSORIATIC ARTHROPATHY
     Dosage: 50 MG, WEEKLY
     Route: 065
     Dates: start: 20130326, end: 20131105
  2. TILIDINE [Concomitant]
     Dosage: UNK
  3. CANDESARTAN [Concomitant]
     Dosage: 16 MG, UNK
  4. PANTOPRAZOLE [Concomitant]
     Dosage: UNK

REACTIONS (1)
  - Overweight [Unknown]
